FAERS Safety Report 4614372-6 (Version None)
Quarter: 2005Q2

REPORT INFORMATION
  Report Type: 
  Country: None (occurrence: None)
  Receive Date: 20050311
  Receipt Date: 20041229
  Transmission Date: 20051028
  Serious: No
  Sender: FDA-Public Use
  Company Number: 2004-00099

PATIENT
  Age: 78 Year
  Sex: Female
  Weight: 66.2 kg

DRUGS (1)
  1. VELCADE [Suspect]
     Indication: MULTIPLE MYELOMA
     Dosage: 1.70 MG, IV BOLUS
     Route: 040
     Dates: start: 20040413, end: 20040604

REACTIONS (1)
  - CHILLS [None]
